FAERS Safety Report 20922832 (Version 1)
Quarter: 2022Q2

REPORT INFORMATION
  Report Type: Report from Study
  Country: AR (occurrence: AR)
  Receive Date: 20220607
  Receipt Date: 20220607
  Transmission Date: 20220720
  Serious: Yes (Hospitalization)
  Sender: FDA-Public Use
  Company Number: AR-ABBVIE-22K-007-4423937-00

PATIENT
  Age: 77 Year
  Sex: Female

DRUGS (2)
  1. HUMIRA [Suspect]
     Active Substance: ADALIMUMAB
     Indication: Rheumatoid arthritis
     Route: 058
     Dates: start: 20180615, end: 202205
  2. HUMIRA [Suspect]
     Active Substance: ADALIMUMAB
     Route: 058
     Dates: start: 20220605

REACTIONS (5)
  - Diarrhoea [Unknown]
  - Cough [Unknown]
  - COVID-19 [Recovered/Resolved]
  - Vaccination site pain [Recovered/Resolved]
  - Vaccination site swelling [Recovered/Resolved]

NARRATIVE: CASE EVENT DATE: 20220505
